FAERS Safety Report 5603507-4 (Version None)
Quarter: 2008Q1

REPORT INFORMATION
  Report Type: 
  Country: None (occurrence: None)
  Receive Date: 20080122
  Receipt Date: 20080110
  Transmission Date: 20080703
  Serious: Yes (Death, Life-Threatening, Other)
  Sender: FDA-Public Use
  Company Number: US-JNJFOC-20070900088

PATIENT
  Age: 75 Year
  Sex: Male

DRUGS (7)
  1. DACOGEN [Suspect]
     Indication: MYELODYSPLASTIC SYNDROME
     Dosage: 40 MG, 1 IN 1 DAY; INJECTION
     Dates: start: 20060814, end: 20060818
  2. FORTAZ [Concomitant]
  3. ACETAMINOPHEN [Concomitant]
  4. PRBC (OTHER HAEMATOLOGICAL AGENTS) [Concomitant]
  5. PLATELETS [Concomitant]
  6. LEVAQUIN [Concomitant]
  7. PROCRIT [Concomitant]

REACTIONS (9)
  - ACUTE RESPIRATORY DISTRESS SYNDROME [None]
  - ANAEMIA [None]
  - BLOOD BILIRUBIN INCREASED [None]
  - BLOOD SODIUM DECREASED [None]
  - PLATELET COUNT DECREASED [None]
  - PNEUMONIA [None]
  - PROTHROMBIN TIME PROLONGED [None]
  - RESPIRATORY FAILURE [None]
  - WHITE BLOOD CELL COUNT INCREASED [None]
